FAERS Safety Report 19910340 (Version 3)
Quarter: 2021Q4

REPORT INFORMATION
  Report Type: Spontaneous
  Country: PL (occurrence: PL)
  Receive Date: 20211004
  Receipt Date: 20211025
  Transmission Date: 20220304
  Serious: Yes (Other)
  Sender: FDA-Public Use
  Company Number: PL-CELLTRION INC.-2021PL012851

PATIENT

DRUGS (7)
  1. INFLIXIMAB [Suspect]
     Active Substance: INFLIXIMAB
     Indication: Crohn^s disease
     Dosage: 10 MG/KG, QW4 (SUBSEQUENT SHORTENING OF THE INTERVALS BETWEEN INFUSIONS TO 4 WEEKS)
     Route: 041
  2. INFLIXIMAB [Suspect]
     Active Substance: INFLIXIMAB
     Dosage: 5 MG/KG (OF BODY WEIGHT AT WEEK 0-2-6, INFUSIONS EVERY 8 WEEK WAS CONTINUED, STANDRAD REGIMEN, AT WE
     Route: 041
  3. INFLIXIMAB [Suspect]
     Active Substance: INFLIXIMAB
     Dosage: 10 MG/KG, Q4WEEKS
     Route: 065
  4. INFLIXIMAB [Suspect]
     Active Substance: INFLIXIMAB
     Dosage: 10 MG/KG
     Route: 065
  5. INFLIXIMAB [Suspect]
     Active Substance: INFLIXIMAB
     Dosage: AT WEEK ZERO-TWO-SIX
     Route: 065
  6. INFLIXIMAB [Suspect]
     Active Substance: INFLIXIMAB
     Dosage: 5MG/KG Q8WEEKS (STANDARD REGIMEN)
     Route: 065
  7. AZATHIOPRINE [Concomitant]
     Active Substance: AZATHIOPRINE
     Indication: Crohn^s disease
     Dosage: UNKNOWN
     Route: 065

REACTIONS (7)
  - Paradoxical psoriasis [Recovered/Resolved]
  - Crohn^s disease [Recovered/Resolved]
  - Loss of therapeutic response [Recovered/Resolved]
  - Overdose [Unknown]
  - Off label use [Unknown]
  - Therapeutic product effect decreased [Recovered/Resolved]
  - Off label use [Unknown]
